FAERS Safety Report 14668110 (Version 1)
Quarter: 2018Q1

REPORT INFORMATION
  Report Type: Spontaneous
  Country: US (occurrence: US)
  Receive Date: 20180321
  Receipt Date: 20180321
  Transmission Date: 20180509
  Serious: No
  Sender: FDA-Public Use
  Company Number: None

PATIENT
  Sex: Female
  Weight: 70.31 kg

DRUGS (1)
  1. MIRENA [Suspect]
     Active Substance: LEVONORGESTREL

REACTIONS (17)
  - Complication associated with device [None]
  - Sciatica [None]
  - Fatigue [None]
  - Dyspnoea [None]
  - Migraine [None]
  - Haemorrhage [None]
  - Vaginal discharge [None]
  - Feeling abnormal [None]
  - Alopecia [None]
  - Visual impairment [None]
  - Arthralgia [None]
  - Weight increased [None]
  - Swelling face [None]
  - Dissociation [None]
  - Musculoskeletal pain [None]
  - Joint swelling [None]
  - Arthropathy [None]
